FAERS Safety Report 20669386 (Version 6)
Quarter: 2023Q4

REPORT INFORMATION
  Report Type: Report from Study
  Country: US (occurrence: US)
  Receive Date: 20220404
  Receipt Date: 20231128
  Transmission Date: 20240110
  Serious: Yes (Other)
  Sender: FDA-Public Use
  Company Number: US-NOVARTISTESTPH-NVSC2022US075860

PATIENT
  Age: 59 Year
  Sex: Male

DRUGS (1)
  1. KESIMPTA [Suspect]
     Active Substance: OFATUMUMAB
     Indication: Multiple sclerosis
     Dosage: 20 MG/KG, QW
     Route: 058
     Dates: start: 20220326, end: 20220401

REACTIONS (12)
  - Neuropathy peripheral [Unknown]
  - Musculoskeletal stiffness [Recovered/Resolved]
  - Musculoskeletal stiffness [Unknown]
  - Illness [Unknown]
  - Peroneal nerve palsy [Unknown]
  - Burning sensation [Unknown]
  - Balance disorder [Unknown]
  - Fall [Unknown]
  - Concussion [Unknown]
  - Brain fog [Unknown]
  - Incorrect dose administered [Recovered/Resolved]
  - Device use error [Recovered/Resolved]

NARRATIVE: CASE EVENT DATE: 20220326
